FAERS Safety Report 7433598-X (Version None)
Quarter: 2011Q2

REPORT INFORMATION
  Report Type: 
  Country: None (occurrence: None)
  Receive Date: 20110422
  Receipt Date: 20110418
  Transmission Date: 20111010
  Serious: Yes (Other)
  Sender: FDA-Public Use
  Company Number: IE-ABBOTT-11P-229-0711089-00

PATIENT
  Age: 28 Year
  Sex: Female

DRUGS (3)
  1. COMBIVIR [Suspect]
     Indication: HIV INFECTION
     Route: 048
     Dates: start: 20100114
  2. NORVIR [Suspect]
     Indication: HIV INFECTION
     Route: 048
     Dates: start: 20100114
  3. REYATAZ [Suspect]
     Indication: HIV INFECTION
     Route: 048
     Dates: start: 20100114

REACTIONS (3)
  - STILLBIRTH [None]
  - PLACENTAL INSUFFICIENCY [None]
  - PLACENTAL INFARCTION [None]
